FAERS Safety Report 17203436 (Version 8)
Quarter: 2020Q2

REPORT INFORMATION
  Report Type: Report from Study
  Country: US (occurrence: US)
  Receive Date: 20191226
  Receipt Date: 20200504
  Transmission Date: 20200713
  Serious: Yes (Other)
  Sender: FDA-Public Use
  Company Number: US-GLAXOSMITHKLINE-US2019TSO170639

PATIENT
  Age: 88 Year
  Sex: Female

DRUGS (10)
  1. CIPRO [Concomitant]
     Active Substance: CIPROFLOXACIN HYDROCHLORIDE
     Indication: PRODUCT USED FOR UNKNOWN INDICATION
     Dosage: UNK
     Dates: end: 202001
  2. NIRAPARIB [Suspect]
     Active Substance: NIRAPARIB
     Dosage: 200 MG EVERY OTHER DAY
     Route: 065
     Dates: start: 20190801
  3. NIRAPARIB [Suspect]
     Active Substance: NIRAPARIB
     Dosage: UNK (100MG ALT W/200MG)
     Dates: start: 202001
  4. FUROSEMIDE. [Concomitant]
     Active Substance: FUROSEMIDE
     Indication: PRODUCT USED FOR UNKNOWN INDICATION
     Dosage: UNK
  5. NIRAPARIB [Suspect]
     Active Substance: NIRAPARIB
     Dosage: 100 MG, QOD
     Route: 065
     Dates: start: 20191202
  6. NIRAPARIB [Suspect]
     Active Substance: NIRAPARIB
     Dosage: 200 MG, QD BEFORE OR AFTER FOOD
     Route: 048
  7. NIRAPARIB [Suspect]
     Active Substance: NIRAPARIB
     Dosage: 100 MG, QD
     Route: 048
  8. NIRAPARIB [Suspect]
     Active Substance: NIRAPARIB
     Indication: MALIGNANT PERITONEAL NEOPLASM
     Dosage: 100 MG DAILY
     Route: 065
     Dates: start: 201906
  9. NIRAPARIB [Suspect]
     Active Substance: NIRAPARIB
     Dosage: 200 MG, QD
     Route: 065
     Dates: start: 201907
  10. NIRAPARIB [Suspect]
     Active Substance: NIRAPARIB
     Dosage: 1 EVERY OTHER DAY ALTERNATING WITH 2 EVERY OTHER DAY
     Route: 048

REACTIONS (10)
  - Urinary tract infection [Recovered/Resolved]
  - Restless legs syndrome [Unknown]
  - Underdose [Unknown]
  - Hospice care [Unknown]
  - Atrial fibrillation [Unknown]
  - Abdominal discomfort [Not Recovered/Not Resolved]
  - Inappropriate schedule of product administration [Unknown]
  - Vomiting [Not Recovered/Not Resolved]
  - Nausea [Unknown]
  - Anaemia [Recovering/Resolving]

NARRATIVE: CASE EVENT DATE: 201906
